FAERS Safety Report 13690364 (Version 2)
Quarter: 2017Q3

REPORT INFORMATION
  Report Type: Spontaneous
  Country: US (occurrence: US)
  Receive Date: 20170626
  Receipt Date: 20170821
  Transmission Date: 20171127
  Serious: Yes (Life-Threatening, Other)
  Sender: FDA-Public Use
  Company Number: US-SA-2017SA113306

PATIENT
  Age: 65 Year
  Sex: Female
  Weight: 89.8 kg

DRUGS (33)
  1. PRILOSEC [Concomitant]
     Active Substance: OMEPRAZOLE MAGNESIUM
     Dosage: 40MG
     Route: 048
     Dates: start: 20030101
  2. PROVERA [Concomitant]
     Active Substance: MEDROXYPROGESTERONE ACETATE
     Dosage: 2.5MG
     Route: 048
     Dates: start: 20170518
  3. ZITHROMAX [Concomitant]
     Active Substance: AZITHROMYCIN DIHYDRATE
     Dosage: 250MG?TWO FOR THE FIRST DAY,THEN 1 DAILY FOR 4 DAYS
     Route: 065
     Dates: start: 20161103, end: 20161108
  4. ZITHROMAX [Concomitant]
     Active Substance: AZITHROMYCIN DIHYDRATE
     Dosage: 250MG?TWO FOR THE FIRST DAY,THEN 1 DAILY FOR 4 DAYS
     Route: 065
     Dates: start: 20161215, end: 20161220
  5. AUBAGIO [Suspect]
     Active Substance: TERIFLUNOMIDE
     Indication: MULTIPLE SCLEROSIS
     Route: 048
     Dates: start: 20130326
  6. XARELTO [Concomitant]
     Active Substance: RIVAROXABAN
  7. ALDACTONE [Concomitant]
     Active Substance: SPIRONOLACTONE
     Dosage: 100MG
     Route: 048
     Dates: start: 20091015
  8. LEVAQUIN [Concomitant]
     Active Substance: LEVOFLOXACIN
     Dosage: 500MG
     Route: 048
     Dates: start: 20150106, end: 20150216
  9. LEVAQUIN [Concomitant]
     Active Substance: LEVOFLOXACIN
     Dosage: 500MG
     Route: 048
     Dates: start: 20141208, end: 20141218
  10. LEVAQUIN [Concomitant]
     Active Substance: LEVOFLOXACIN
     Dosage: 500MG
     Route: 048
     Dates: start: 20120217, end: 20120227
  11. VOLTAREN [Concomitant]
     Active Substance: DICLOFENAC SODIUM
     Dosage: 75MG WITH FOOD?DELAYED-RELEASE
     Route: 048
     Dates: start: 20161111
  12. TOPAMAX [Concomitant]
     Active Substance: TOPIRAMATE
     Dosage: 100 MG
     Route: 048
     Dates: start: 20030101
  13. ESTRACE [Concomitant]
     Active Substance: ESTRADIOL
     Dosage: 1MG
     Route: 048
     Dates: start: 20170518
  14. LEVAQUIN [Concomitant]
     Active Substance: LEVOFLOXACIN
     Dosage: 500MG
     Route: 048
     Dates: start: 20140307, end: 20140314
  15. DELTASONE [Concomitant]
     Active Substance: PREDNISONE
     Dosage: 4TABS EVERY MORNING FOR 4 DAYS, THEN3 TABS FOR 1 DAYTHEN 2 TABS FOR 1
     Route: 065
     Dates: start: 20131107, end: 20131114
  16. PEPCID [Concomitant]
     Active Substance: FAMOTIDINE
     Dosage: 40MG AT DINNER TIME
     Route: 048
     Dates: start: 20121030
  17. SAVELLA [Concomitant]
     Active Substance: MILNACIPRAN HYDROCHLORIDE
     Dosage: 100 MG
     Route: 048
     Dates: start: 20120305
  18. LEVAQUIN [Concomitant]
     Active Substance: LEVOFLOXACIN
     Dosage: 500MG
     Route: 048
     Dates: start: 20170427, end: 20170507
  19. ANTIVERT [Concomitant]
     Active Substance: MECLIZINE HYDROCHLORIDE
     Dosage: 25MG
     Route: 048
     Dates: start: 20140505, end: 20140525
  20. DELTASONE [Concomitant]
     Active Substance: PREDNISONE
     Dosage: 4TABS EVERY MORNING FOR 4 DAYS, THEN3 TABS FOR 1 DAYTHEN 2 TABS FOR 1
     Route: 065
     Dates: start: 20140307, end: 20140307
  21. PHENERGAN [Concomitant]
     Active Substance: PROMETHAZINE HYDROCHLORIDE
     Route: 048
     Dates: start: 20141103, end: 20170505
  22. DELTASONE [Concomitant]
     Active Substance: PREDNISONE
     Dosage: 4TABS EVERY MORNING FOR 4 DAYS, THEN3 TABS FOR 1 DAYTHEN 2 TABS FOR 1
     Route: 065
     Dates: start: 20170427, end: 20170504
  23. PHENERGAN [Concomitant]
     Active Substance: PROMETHAZINE HYDROCHLORIDE
     Route: 048
     Dates: start: 20140307, end: 20140315
  24. NEURONTIN [Concomitant]
     Active Substance: GABAPENTIN
     Dosage: 300 MG, ONE IN THE MORNING AND TWO IN THE EVENING
     Route: 065
     Dates: start: 20120216
  25. TOPROL XL [Concomitant]
     Active Substance: METOPROLOL SUCCINATE
     Dosage: EXTENDED-RELEASE
     Route: 048
     Dates: start: 20161111
  26. ZANAFLEX [Concomitant]
     Active Substance: TIZANIDINE HYDROCHLORIDE
     Dosage: FIVE TIMES A DAY
     Route: 065
     Dates: start: 20030101
  27. PREMPRO [Concomitant]
     Active Substance: ESTROGENS, CONJUGATED\MEDROXYPROGESTERONE ACETATE
     Dosage: 0.45/1.5
     Route: 048
     Dates: start: 20120401, end: 20150501
  28. DELTASONE [Concomitant]
     Active Substance: PREDNISONE
     Dosage: 4TABS EVERY MORNING FOR 4 DAYS, THEN3 TABS FOR 1 DAYTHEN 2 TABS FOR 1
     Route: 065
     Dates: start: 20141208, end: 20141215
  29. AVENTYL [Concomitant]
     Active Substance: NORTRIPTYLINE HYDROCHLORIDE
     Dosage: 50MG
     Route: 048
     Dates: start: 20110101
  30. VICODIN [Concomitant]
     Active Substance: ACETAMINOPHEN\HYDROCODONE BITARTRATE
     Dosage: EVERY EIGHT HOURS?HYDROCODONE BITARTRATE 10 MG, ACETAMINOPHEN 650 MG
     Route: 048
     Dates: start: 19930101
  31. ZITHROMAX [Concomitant]
     Active Substance: AZITHROMYCIN DIHYDRATE
     Dosage: 250MG?TWO FOR THE FIRST DAY,THEN 1 DAILY FOR 4 DAYS
     Route: 065
     Dates: start: 20140505, end: 20141005
  32. LEVAQUIN [Concomitant]
     Active Substance: LEVOFLOXACIN
     Dosage: 500MG
     Route: 048
     Dates: start: 20131107, end: 20131107
  33. DELTASONE [Concomitant]
     Active Substance: PREDNISONE
     Dosage: 4TABS EVERY MORNING FOR 4 DAYS, THEN3 TABS FOR 1 DAYTHEN 2 TABS FOR 1
     Route: 065
     Dates: start: 20150106, end: 20150213

REACTIONS (21)
  - Dyspnoea exertional [Not Recovered/Not Resolved]
  - Bronchitis [Recovered/Resolved]
  - Pain in extremity [Recovered/Resolved]
  - Pulmonary embolism [Unknown]
  - Dry skin [Not Recovered/Not Resolved]
  - Hair texture abnormal [Not Recovered/Not Resolved]
  - Hypertension [Unknown]
  - Dyspnoea [Unknown]
  - Cataract [Unknown]
  - Vertigo [Recovered/Resolved]
  - Malaise [Not Recovered/Not Resolved]
  - Influenza [Unknown]
  - Pain in extremity [Unknown]
  - Cerumen impaction [Unknown]
  - Mammogram abnormal [Unknown]
  - Salivary gland enlargement [Recovered/Resolved]
  - Bronchitis [Recovered/Resolved]
  - Thrombosis [Unknown]
  - Eyelid ptosis [Unknown]
  - Acute sinusitis [Recovered/Resolved]
  - Acute sinusitis [Recovered/Resolved]

NARRATIVE: CASE EVENT DATE: 20131015
